FAERS Safety Report 11350061 (Version 4)
Quarter: 2016Q4

REPORT INFORMATION
  Report Type: Spontaneous
  Country: US (occurrence: US)
  Receive Date: 20150807
  Receipt Date: 20161219
  Transmission Date: 20170206
  Serious: Yes (Hospitalization, Disabling, Other)
  Sender: FDA-Public Use
  Company Number: US-ABBVIE-15P-163-1388131-00

PATIENT
  Age: 54 Year
  Sex: Female

DRUGS (2)
  1. DICLOFENAC [Concomitant]
     Active Substance: DICLOFENAC
     Indication: PRODUCT USED FOR UNKNOWN INDICATION
  2. HUMIRA [Suspect]
     Active Substance: ADALIMUMAB
     Indication: PRODUCT USED FOR UNKNOWN INDICATION
     Route: 058

REACTIONS (26)
  - Thyroid disorder [Unknown]
  - Psoriatic arthropathy [Unknown]
  - Autoimmune disorder [Unknown]
  - Diabetes mellitus [Unknown]
  - Facet joint syndrome [Unknown]
  - Connective tissue disorder [Unknown]
  - Fatigue [Unknown]
  - Arthropathy [Unknown]
  - Osteoarthritis [Unknown]
  - Feeling abnormal [Unknown]
  - Dry throat [Unknown]
  - Spinal osteoarthritis [Unknown]
  - Fibromyalgia [Unknown]
  - Nasopharyngitis [Unknown]
  - Sjogren^s syndrome [Unknown]
  - Sinus disorder [Recovered/Resolved]
  - Depression [Unknown]
  - Aphasia [Unknown]
  - Injury corneal [Unknown]
  - Condition aggravated [Unknown]
  - Nasopharyngitis [Recovered/Resolved]
  - Spinal operation [Unknown]
  - Drug ineffective [Unknown]
  - Sinus disorder [Unknown]
  - Narcolepsy [Unknown]
  - Aphonia [Unknown]

NARRATIVE: CASE EVENT DATE: 2016
